FAERS Safety Report 8956475 (Version 1)
Quarter: 2012Q4

REPORT INFORMATION
  Report Type: 
  Country: CO (occurrence: CO)
  Receive Date: 20121210
  Receipt Date: 20121210
  Transmission Date: 20130627
  Serious: Yes (Other)
  Sender: FDA-Public Use
  Company Number: CO-PFIZER INC-2012308016

PATIENT
  Age: 50 Year
  Sex: Male

DRUGS (2)
  1. NORVAS [Suspect]
     Indication: HYPERTENSION ARTERIAL
     Dosage: 5 mg, 1x/day at night
     Route: 048
     Dates: start: 1997
  2. DILATREND [Concomitant]
     Indication: CARDIAC ARRHYTHMIA
     Dosage: 25 mg, 1x/day
     Route: 048
     Dates: start: 2010

REACTIONS (2)
  - Nephrolithiasis [Recovered/Resolved]
  - Blood creatinine increased [Not Recovered/Not Resolved]
